FAERS Safety Report 8823392 (Version 4)
Quarter: 2013Q2

REPORT INFORMATION
  Report Type: Report from Study
  Country: SI (occurrence: SI)
  Receive Date: 20121003
  Receipt Date: 20130416
  Transmission Date: 20140414
  Serious: Yes (Life-Threatening, Other)
  Sender: FDA-Public Use
  Company Number: SI-ABBOTT-12P-261-0990191-00

PATIENT
  Age: 26 Year
  Sex: Female
  Weight: 75 kg

DRUGS (8)
  1. HUMIRA [Suspect]
     Indication: ANKYLOSING SPONDYLITIS
     Route: 058
     Dates: start: 20120329, end: 20120524
  2. METHOTREXATE [Suspect]
     Indication: PSORIATIC ARTHROPATHY
     Dosage: 10-25 G/WEEK
     Dates: start: 201110, end: 201209
  3. METHOTREXATE [Suspect]
  4. SULFASALAZINE [Concomitant]
     Indication: PRODUCT USED FOR UNKNOWN INDICATION
     Dosage: (3 X 1000 MG) DAILY
     Dates: start: 200706, end: 201110
  5. METILPREDNISOLONE [Concomitant]
     Indication: PRODUCT USED FOR UNKNOWN INDICATION
     Dosage: (4G / 2 DAYS) DAILY
     Dates: start: 200706, end: 200804
  6. NALGESIN [Concomitant]
     Indication: PRODUCT USED FOR UNKNOWN INDICATION
     Dosage: (1-2 X 550 MG/DAY)
     Dates: start: 200706, end: 201209
  7. FOLACIN [Concomitant]
     Indication: PRODUCT USED FOR UNKNOWN INDICATION
     Dosage: 2X5MG/WEEK
     Dates: start: 201110, end: 201209
  8. KYTRIL [Concomitant]
     Indication: PRODUCT USED FOR UNKNOWN INDICATION

REACTIONS (1)
  - Malignant melanoma [Recovered/Resolved]
